FAERS Safety Report 8035581-2 (Version None)
Quarter: 2012Q1

REPORT INFORMATION
  Report Type: 
  Country: None (occurrence: None)
  Receive Date: 20120110
  Receipt Date: 20120110
  Transmission Date: 20120608
  Serious: No
  Sender: FDA-Public Use
  Company Number: None

PATIENT
  Age: 68 Year
  Sex: Female
  Weight: 56.6996 kg

DRUGS (1)
  1. CREST PRO-HEALTH [Suspect]
     Indication: DENTAL PLAQUE
     Dosage: 4 TEASPOONS 2X A DAY MOUTH
     Route: 048
     Dates: start: 20111001, end: 20111201

REACTIONS (1)
  - TOOTH DISCOLOURATION [None]
